FAERS Safety Report 5600300-3 (Version None)
Quarter: 2007Q4

REPORT INFORMATION
  Report Type: 
  Country: None (occurrence: None)
  Receive Date: 20071227
  Receipt Date: 20070813
  Transmission Date: 20080405
  Serious: Yes (Hospitalization)
  Sender: FDA-Public Use
  Company Number: 2007S1000206

PATIENT
  Age: 57 Year
  Sex: Male

DRUGS (3)
  1. SORIATANE [Suspect]
     Indication: PSORIASIS
     Dosage: 25 MG;QD;PO : 25 MG;QOD;PO : 25 MG;QD;PO
     Route: 048
     Dates: start: 20070413, end: 20070420
  2. SORIATANE [Suspect]
     Indication: PSORIASIS
     Dosage: 25 MG;QD;PO : 25 MG;QOD;PO : 25 MG;QD;PO
     Route: 048
     Dates: start: 20030201
  3. KETOPROFEN [Concomitant]

REACTIONS (1)
  - ALANINE AMINOTRANSFERASE INCREASED [None]
